FAERS Safety Report 5833702-0 (Version None)
Quarter: 2008Q3

REPORT INFORMATION
  Report Type: 
  Country: None (occurrence: None)
  Receive Date: 20080804
  Receipt Date: 20080804
  Transmission Date: 20090109
  Serious: Yes (Other)
  Sender: FDA-Public Use
  Company Number: None

PATIENT
  Age: 41 Year
  Sex: Female

DRUGS (7)
  1. DEPO-PROVERA [Suspect]
     Dosage: 150 MG FOR CONTRACE Q 12 WK IM
     Route: 030
     Dates: start: 20040401
  2. DEPO-PROVERA [Suspect]
     Dosage: 150 MG FOR CONTRACE Q 12 WK IM
     Route: 030
     Dates: start: 20070101
  3. DEPO-PROVERA [Suspect]
     Dosage: 150 MG FOR CONTRACE Q 12 WK IM
     Route: 030
     Dates: start: 20070601
  4. DEPO-PROVERA [Suspect]
     Dosage: 150 MG FOR CONTRACE Q 12 WK IM
     Route: 030
     Dates: start: 20070901
  5. NORTRIPTYLINE HCL [Concomitant]
  6. GABAPENTIN [Concomitant]
  7. CELEXA [Concomitant]

REACTIONS (1)
  - NEUROPATHY PERIPHERAL [None]
